FAERS Safety Report 6735287-3 (Version None)
Quarter: 2010Q2

REPORT INFORMATION
  Report Type: 
  Country: None (occurrence: None)
  Receive Date: 20100514
  Receipt Date: 20090327
  Transmission Date: 20101027
  Serious: Yes (Hospitalization)
  Sender: FDA-Public Use
  Company Number: WAES 0903USA05198

PATIENT
  Sex: Female

DRUGS (2)
  1. HYDRODIURIL [Suspect]
     Dosage: PO
  2. PAXIL [Concomitant]

REACTIONS (1)
  - HYPONATRAEMIA [None]
